FAERS Safety Report 8576093-7 (Version None)
Quarter: 2012Q3

REPORT INFORMATION
  Report Type: 
  Country: None (occurrence: None)
  Receive Date: 20120807
  Receipt Date: 20120721
  Transmission Date: 20120928
  Serious: No
  Sender: FDA-Public Use
  Company Number: US-009507513-1208USA002173

PATIENT

DRUGS (1)
  1. CLARITIN-D 24 HOUR [Suspect]
     Indication: SEASONAL ALLERGY
     Dosage: UNK, QD
     Route: 048
     Dates: end: 20120601

REACTIONS (4)
  - SWOLLEN TONGUE [None]
  - PHARYNGEAL OEDEMA [None]
  - LIP SWELLING [None]
  - PRURITUS [None]
